FAERS Safety Report 10480589 (Version 1)
Quarter: 2014Q3

REPORT INFORMATION
  Report Type: Spontaneous
  Country: US (occurrence: None)
  Receive Date: 20140926
  Receipt Date: 20140926
  Transmission Date: 20150326
  Serious: Yes (Other)
  Sender: FDA-Public Use
  Company Number: None

PATIENT
  Age: 28 Year
  Sex: Male
  Weight: 90.72 kg

DRUGS (1)
  1. ZIPRASIDONE [Suspect]
     Active Substance: ZIPRASIDONE
     Indication: BIPOLAR DISORDER

REACTIONS (6)
  - Restlessness [None]
  - Discomfort [None]
  - Anxiety [None]
  - Suicidal ideation [None]
  - Panic disorder [None]
  - Self-injurious ideation [None]

NARRATIVE: CASE EVENT DATE: 20120301
